FAERS Safety Report 16664930 (Version 2)
Quarter: 2019Q3

REPORT INFORMATION
  Report Type: Report from Study
  Country: None (occurrence: US)
  Receive Date: 20190803
  Receipt Date: 20190806
  Transmission Date: 20191004
  Serious: Yes (Death, Other)
  Sender: FDA-Public Use
  Company Number: US-ABBVIE-18K-163-2488612-00

PATIENT
  Age: 71 Year
  Sex: Female

DRUGS (5)
  1. VENETOCLAX. [Suspect]
     Active Substance: VENETOCLAX
     Indication: ACUTE MYELOID LEUKAEMIA
  2. AZACITIDINE. [Concomitant]
     Active Substance: AZACITIDINE
     Indication: MYELODYSPLASTIC SYNDROME
  3. VENETOCLAX. [Suspect]
     Active Substance: VENETOCLAX
     Indication: MYELODYSPLASTIC SYNDROME
     Dosage: FOR 30 DAYS
     Route: 048
     Dates: start: 20180913, end: 201812
  4. AZACITIDINE. [Concomitant]
     Active Substance: AZACITIDINE
     Indication: ACUTE MYELOID LEUKAEMIA
  5. AZACITIDINE. [Concomitant]
     Active Substance: AZACITIDINE
     Indication: REMISSION NOT ACHIEVED

REACTIONS (3)
  - Death [Fatal]
  - Intentional product use issue [Unknown]
  - Acute myeloid leukaemia [Unknown]

NARRATIVE: CASE EVENT DATE: 201809
